FAERS Safety Report 9100264 (Version 4)
Quarter: 2013Q3

REPORT INFORMATION
  Report Type: Spontaneous
  Country: US (occurrence: US)
  Receive Date: 20130215
  Receipt Date: 20130812
  Transmission Date: 20140515
  Serious: Yes (Hospitalization, Other)
  Sender: FDA-Public Use
  Company Number: US-ROCHE-649015

PATIENT
  Age: 25 Year
  Sex: Male
  Weight: 79.4 kg

DRUGS (4)
  1. ACCUTANE [Suspect]
     Indication: ACNE CYSTIC
     Route: 048
     Dates: start: 19990202, end: 200009
  2. ACCUTANE [Suspect]
     Dosage: FREQUENCY: EVERY OTHER DAY
     Route: 048
     Dates: start: 20010309, end: 200112
  3. ACCUTANE [Suspect]
     Route: 048
  4. ACCUTANE [Suspect]
     Route: 048
     Dates: start: 20040416, end: 200411

REACTIONS (7)
  - Proctitis ulcerative [Unknown]
  - Colitis ulcerative [Unknown]
  - Inflammatory bowel disease [Unknown]
  - Intestinal haemorrhage [Unknown]
  - Back pain [Unknown]
  - Oral herpes [Unknown]
  - Depression [Unknown]
